FAERS Safety Report 20362153 (Version 5)
Quarter: 2022Q1

REPORT INFORMATION
  Report Type: Spontaneous
  Country: GB (occurrence: GB)
  Receive Date: 20220121
  Receipt Date: 20220223
  Transmission Date: 20220423
  Serious: Yes (Life-Threatening, Hospitalization, Other)
  Sender: FDA-Public Use
  Company Number: PHHY2007GB012645

PATIENT
  Sex: Male
  Weight: 3.1 kg

DRUGS (9)
  1. ZOFRAN [Suspect]
     Active Substance: ONDANSETRON HYDROCHLORIDE
     Indication: Foetal exposure during pregnancy
     Dosage: UNK
     Route: 064
  2. OMEPRAZOLE [Suspect]
     Active Substance: OMEPRAZOLE
     Indication: Foetal exposure during pregnancy
     Dosage: MATERNAL DOSE: 40 MG
     Route: 064
     Dates: start: 200701
  3. OMEPRAZOLE [Suspect]
     Active Substance: OMEPRAZOLE
     Dosage: MATERNAL DOSE: 40 G
     Route: 064
     Dates: start: 200701
  4. PROCHLORPERAZINE [Suspect]
     Active Substance: PROCHLORPERAZINE
     Indication: Foetal exposure during pregnancy
     Dosage: UNK
     Route: 064
  5. METOCLOPRAMIDE [Suspect]
     Active Substance: METOCLOPRAMIDE
     Indication: Foetal exposure during pregnancy
     Dosage: MATERNAL DOSE: 10 MG, QD
     Route: 064
     Dates: start: 20061208, end: 20061218
  6. CYCLIZINE [Suspect]
     Active Substance: CYCLIZINE
     Indication: Foetal exposure during pregnancy
     Dosage: UNK
     Route: 064
  7. FERROUS FUMARATE [Concomitant]
     Active Substance: FERROUS FUMARATE
     Indication: Foetal exposure during pregnancy
     Dosage: UNK
     Route: 064
     Dates: start: 20061208, end: 20061218
  8. VITAMIN K [Concomitant]
     Active Substance: PHYTONADIONE
     Indication: Foetal exposure during pregnancy
     Dosage: 0.1 ML
     Route: 064
  9. IRON [Concomitant]
     Active Substance: IRON
     Indication: Foetal exposure during pregnancy
     Dosage: UNK
     Route: 064
     Dates: start: 20061208

REACTIONS (4)
  - Necrotising enterocolitis neonatal [Unknown]
  - Meconium abnormal [Unknown]
  - Abdominal distension [Unknown]
  - Foetal exposure during pregnancy [Unknown]
